FAERS Safety Report 17750391 (Version 1)
Quarter: 2020Q2

REPORT INFORMATION
  Report Type: Spontaneous
  Country: US (occurrence: US)
  Receive Date: 20200505
  Receipt Date: 20200505
  Transmission Date: 20200714
  Serious: No
  Sender: FDA-Public Use
  Company Number: None

PATIENT
  Age: 55 Year
  Sex: Female

DRUGS (1)
  1. ZOLEDRONIC ACID 4MG/5ML SDV INJ [Suspect]
     Active Substance: ZOLEDRONIC ACID
     Dosage: ?          OTHER FREQUENCY:EVERY 365 DAYS;?
     Route: 040
     Dates: start: 20180101

REACTIONS (2)
  - Product dispensing error [None]
  - Therapy interrupted [None]

NARRATIVE: CASE EVENT DATE: 20200505
